FAERS Safety Report 12964312 (Version 1)
Quarter: 2016Q4

REPORT INFORMATION
  Report Type: Spontaneous
  Country: US (occurrence: US)
  Receive Date: 20161122
  Receipt Date: 20161122
  Transmission Date: 20170207
  Serious: No
  Sender: FDA-Public Use
  Company Number: US-PFIZER INC-2016537284

PATIENT
  Age: 9 Year
  Sex: Female
  Weight: 21 kg

DRUGS (1)
  1. GENOTROPIN [Suspect]
     Active Substance: SOMATROPIN
     Indication: GROWTH HORMONE DEFICIENCY
     Dosage: 0.8 MG, 1X/DAY
     Route: 058

REACTIONS (4)
  - Abnormal behaviour [Unknown]
  - Personality disorder [Unknown]
  - Antisocial behaviour [Unknown]
  - Belligerence [Not Recovered/Not Resolved]

NARRATIVE: CASE EVENT DATE: 2016
